FAERS Safety Report 6060027-3 (Version None)
Quarter: 2009Q1

REPORT INFORMATION
  Report Type: 
  Country: None (occurrence: None)
  Receive Date: 20090130
  Receipt Date: 20090127
  Transmission Date: 20090719
  Serious: Yes (Life-Threatening)
  Sender: FDA-Public Use
  Company Number: US-MERCK-0901USA03844

PATIENT
  Age: 64 Year
  Sex: Male
  Weight: 76 kg

DRUGS (3)
  1. IVEMEND [Suspect]
     Indication: PROPHYLAXIS OF NAUSEA AND VOMITING
     Route: 041
     Dates: start: 20081029, end: 20081029
  2. DEXAMETHASONE [Concomitant]
     Route: 065
     Dates: start: 20081029
  3. ALOXI [Concomitant]
     Route: 065
     Dates: start: 20081029

REACTIONS (5)
  - ABDOMINAL PAIN [None]
  - BLOOD PRESSURE INCREASED [None]
  - DYSPNOEA [None]
  - ERYTHEMA [None]
  - FLANK PAIN [None]
